FAERS Safety Report 9233477 (Version 2)
Quarter: 2013Q2

REPORT INFORMATION
  Report Type: Spontaneous
  Country: US (occurrence: None)
  Receive Date: 20130412
  Receipt Date: 20130506
  Transmission Date: 20140414
  Serious: Yes (Disabling, Other)
  Sender: FDA-Public Use
  Company Number: ADR-2013-00632

PATIENT
  Sex: Female

DRUGS (2)
  1. BACLOFEN [Suspect]
     Indication: MUSCLE SPASTICITY
  2. BACLOFEN [Suspect]
     Indication: MULTIPLE SCLEROSIS

REACTIONS (8)
  - Abasia [None]
  - Movement disorder [None]
  - Suicide attempt [None]
  - Coma [None]
  - Dysstasia [None]
  - Peroneal nerve palsy [None]
  - Feeling abnormal [None]
  - Quality of life decreased [None]
